FAERS Safety Report 10177698 (Version 3)
Quarter: 2015Q2

REPORT INFORMATION
  Report Type: Spontaneous
  Country: US (occurrence: US)
  Receive Date: 20140516
  Receipt Date: 20150506
  Transmission Date: 20150821
  Serious: No
  Sender: FDA-Public Use
  Company Number: US-SA-2014SA018633

PATIENT
  Age: 62 Year
  Sex: Female

DRUGS (4)
  1. APIDRA [Suspect]
     Active Substance: INSULIN GLULISINE
     Indication: TYPE 1 DIABETES MELLITUS
     Dosage: PRODUCT START DATE 2 MONTHS AGO, FREQUENCY-CSII PUMP, DOSE: APPROX.40 TO 45 UNITS
     Route: 058
     Dates: start: 201401
  2. APIDRA [Suspect]
     Active Substance: INSULIN GLULISINE
     Indication: TYPE 1 DIABETES MELLITUS
     Dosage: PRODUCT START DATE 2 MONTHS AGO, FREQUENCY-CSII PUMP, DOSE: APPROX.40 TO 45 UNITS
     Route: 058
     Dates: start: 201401
  3. APIDRA [Suspect]
     Active Substance: INSULIN GLULISINE
     Indication: TYPE 1 DIABETES MELLITUS
     Dosage: PRODUCT START DATE 2 MONTHS AGO, FREQUENCY-CSII PUMP, DOSE: APPROX.40 TO 45 UNITS
     Route: 058
     Dates: start: 201401
  4. NOVOLOG [Concomitant]
     Active Substance: INSULIN ASPART

REACTIONS (4)
  - Drug ineffective [Unknown]
  - Glycosylated haemoglobin increased [Unknown]
  - Blood glucose increased [Recovered/Resolved]
  - Fear [Not Recovered/Not Resolved]
